FAERS Safety Report 9440842 (Version 2)
Quarter: 2014Q3

REPORT INFORMATION
  Report Type: Spontaneous
  Country: US (occurrence: US)
  Receive Date: 20130805
  Receipt Date: 20140715
  Transmission Date: 20150326
  Serious: Yes (Hospitalization, Other)
  Sender: FDA-Public Use
  Company Number: US-009507513-1307USA017077

PATIENT
  Sex: Female

DRUGS (1)
  1. NUVARING [Suspect]
     Active Substance: ETHINYL ESTRADIOL\ETONOGESTREL
     Indication: CONTRACEPTION
     Dosage: UNK
     Route: 067
     Dates: start: 200604, end: 201202

REACTIONS (21)
  - Coronary angioplasty [Unknown]
  - Catheterisation cardiac [Unknown]
  - Pulmonary embolism [Unknown]
  - Thrombosis in device [Unknown]
  - Central venous catheterisation [Unknown]
  - Coagulopathy [Unknown]
  - Deep vein thrombosis [Unknown]
  - Thrombectomy [Unknown]
  - Thrombosis in device [Unknown]
  - Acute myocardial infarction [Unknown]
  - Cardiac failure congestive [Unknown]
  - Stent placement [Unknown]
  - Epistaxis [Unknown]
  - Asthenia [Unknown]
  - Catheterisation cardiac [Unknown]
  - Angioplasty [Unknown]
  - Cardiogenic shock [Unknown]
  - Constipation [Unknown]
  - Thrombectomy [Unknown]
  - Intra-aortic balloon placement [Unknown]
  - Urinary tract infection [Unknown]

NARRATIVE: CASE EVENT DATE: 201202
